FAERS Safety Report 14406638 (Version 1)
Quarter: 2018Q1

REPORT INFORMATION
  Report Type: Spontaneous
  Country: US (occurrence: US)
  Receive Date: 20180116
  Receipt Date: 20180116
  Transmission Date: 20180509
  Serious: Yes (Hospitalization)
  Sender: FDA-Public Use
  Company Number: None

PATIENT
  Age: 63 Year
  Sex: Female

DRUGS (2)
  1. ENBREL [Suspect]
     Active Substance: ETANERCEPT
     Indication: RHEUMATOID ARTHRITIS
     Route: 058
     Dates: start: 20130807, end: 20170207
  2. CARAFATE [Concomitant]
     Active Substance: SUCRALFATE

REACTIONS (3)
  - Pneumonia [None]
  - Ulcer [None]
  - Drug dose omission [None]

NARRATIVE: CASE EVENT DATE: 20171225
